FAERS Safety Report 8434333-9 (Version None)
Quarter: 2012Q2

REPORT INFORMATION
  Report Type: 
  Country: None (occurrence: None)
  Receive Date: 20120613
  Receipt Date: 20120607
  Transmission Date: 20120825
  Serious: Yes (Life-Threatening)
  Sender: FDA-Public Use
  Company Number: US-MERCK-1205USA02858

PATIENT
  Age: 14 Year
  Sex: Male
  Weight: 57 kg

DRUGS (1)
  1. SINGULAIR [Suspect]
     Indication: ASTHMA
     Route: 048
     Dates: start: 20110403, end: 20110409

REACTIONS (6)
  - NERVOUSNESS [None]
  - AGGRESSION [None]
  - SUICIDAL BEHAVIOUR [None]
  - SCREAMING [None]
  - INSOMNIA [None]
  - AGITATION [None]
